FAERS Safety Report 14939503 (Version 2)
Quarter: 2018Q2

REPORT INFORMATION
  Report Type: Report from Study
  Country: None (occurrence: CO)
  Receive Date: 20180525
  Receipt Date: 20180526
  Transmission Date: 20180711
  Serious: Yes (Death, Hospitalization, Other)
  Sender: FDA-Public Use
  Company Number: CO-ABBVIE-18K-036-2291741-00

PATIENT
  Age: 24 Year
  Sex: Female
  Weight: 36 kg

DRUGS (3)
  1. HUMIRA [Suspect]
     Active Substance: ADALIMUMAB
     Indication: CROHN^S DISEASE
     Route: 058
     Dates: start: 20170407, end: 2017
  2. HUMIRA [Suspect]
     Active Substance: ADALIMUMAB
     Route: 058
     Dates: end: 20180219
  3. PARACETAMOL [Concomitant]
     Active Substance: ACETAMINOPHEN
     Indication: PRODUCT USED FOR UNKNOWN INDICATION
     Dosage: DEPENDING ON NEED

REACTIONS (23)
  - Bradycardia [Not Recovered/Not Resolved]
  - Pallor [Not Recovered/Not Resolved]
  - Hyperhidrosis [Unknown]
  - Abdominal sepsis [Not Recovered/Not Resolved]
  - Multiple organ dysfunction syndrome [Unknown]
  - General physical health deterioration [Unknown]
  - Colostomy [Not Recovered/Not Resolved]
  - Anuria [Not Recovered/Not Resolved]
  - Gastrointestinal fistula [Unknown]
  - Hypotension [Not Recovered/Not Resolved]
  - Coma scale abnormal [Unknown]
  - Acidosis [Not Recovered/Not Resolved]
  - Rectal haemorrhage [Unknown]
  - Rectal tenesmus [Not Recovered/Not Resolved]
  - Anaemia [Not Recovered/Not Resolved]
  - Pelvic abscess [Not Recovered/Not Resolved]
  - Asthenia [Not Recovered/Not Resolved]
  - Crohn^s disease [Not Recovered/Not Resolved]
  - Anal fistula [Not Recovered/Not Resolved]
  - Gastrointestinal stoma complication [Not Recovered/Not Resolved]
  - Shock [Not Recovered/Not Resolved]
  - Mucosal discolouration [Not Recovered/Not Resolved]
  - Blood count abnormal [Unknown]

NARRATIVE: CASE EVENT DATE: 201801
